FAERS Safety Report 9198998 (Version 2)
Quarter: 2013Q3

REPORT INFORMATION
  Report Type: Spontaneous
  Country: DE (occurrence: None)
  Receive Date: 20130326
  Receipt Date: 20130726
  Transmission Date: 20140515
  Serious: Yes (Life-Threatening, Hospitalization, Other)
  Sender: FDA-Public Use
  Company Number: ADR-2013-00497

PATIENT
  Age: 55 Year
  Sex: Male

DRUGS (1)
  1. LIORESAL [Suspect]

REACTIONS (5)
  - Coma [None]
  - Haemodialysis [None]
  - Pneumonia [None]
  - Rebound effect [None]
  - Alcohol use [None]
